FAERS Safety Report 15215392 (Version 1)
Quarter: 2018Q3

REPORT INFORMATION
  Report Type: Spontaneous
  Country: US (occurrence: US)
  Receive Date: 20180730
  Receipt Date: 20180730
  Transmission Date: 20181010
  Serious: Yes (Other)
  Sender: FDA-Public Use
  Company Number: US-JNJFOC-20180726791

PATIENT
  Age: 60 Year
  Sex: Male
  Weight: 25.86 kg

DRUGS (8)
  1. METFORMIN [Concomitant]
     Active Substance: METFORMIN HYDROCHLORIDE
  2. IRON [Concomitant]
     Active Substance: IRON
  3. GABAPENTIN. [Concomitant]
     Active Substance: GABAPENTIN
  4. POTASSIUM [Concomitant]
     Active Substance: POTASSIUM
  5. CYMBALTA [Concomitant]
     Active Substance: DULOXETINE HYDROCHLORIDE
  6. TRAMADOL. [Concomitant]
     Active Substance: TRAMADOL
  7. DARZALEX [Suspect]
     Active Substance: DARATUMUMAB
     Indication: PLASMA CELL MYELOMA
     Route: 042
     Dates: start: 20170213, end: 201804
  8. ACTOS [Concomitant]
     Active Substance: PIOGLITAZONE HYDROCHLORIDE

REACTIONS (1)
  - Helicobacter infection [Recovered/Resolved]

NARRATIVE: CASE EVENT DATE: 201804
